FAERS Safety Report 6850092-5 (Version None)
Quarter: 2010Q3

REPORT INFORMATION
  Report Type: 
  Country: None (occurrence: None)
  Receive Date: 20100716
  Receipt Date: 20071115
  Transmission Date: 20110219
  Serious: No
  Sender: FDA-Public Use
  Company Number: US-PFIZER INC-2007085472

PATIENT
  Sex: Female

DRUGS (3)
  1. CHANTIX [Suspect]
     Indication: SMOKING CESSATION THERAPY
     Dates: start: 20070101, end: 20080101
  2. OPIOIDS [Interacting]
  3. OXYCONTIN [Concomitant]

REACTIONS (4)
  - ABNORMAL DREAMS [None]
  - ALOPECIA [None]
  - DRUG INTERACTION [None]
  - NAUSEA [None]
